FAERS Safety Report 8217251-0 (Version None)
Quarter: 2012Q1

REPORT INFORMATION
  Report Type: 
  Country: None (occurrence: None)
  Receive Date: 20120319
  Receipt Date: 20120314
  Transmission Date: 20120608
  Serious: No
  Sender: FDA-Public Use
  Company Number: US-PFIZER INC-2012067508

PATIENT
  Sex: Female

DRUGS (1)
  1. SUTENT [Suspect]
     Indication: MALIGNANT NEOPLASM OF RENAL PELVIS
     Dosage: 1 X'S 12.5 + 1 X'S 25 = 37.5 DAILY

REACTIONS (2)
  - DISEASE PROGRESSION [None]
  - MALIGNANT NEOPLASM OF RENAL PELVIS [None]
